FAERS Safety Report 5477601-5 (Version None)
Quarter: 2007Q4

REPORT INFORMATION
  Report Type: 
  Country: None (occurrence: None)
  Receive Date: 20071004
  Receipt Date: 20070115
  Transmission Date: 20080405
  Serious: Yes (Death)
  Sender: FDA-Public Use
  Company Number: US-ELI_LILLY_AND_COMPANY-US200701002735

PATIENT
  Sex: Female

DRUGS (6)
  1. ZYPREXA [Suspect]
     Indication: ANGER
     Dosage: 15 MG, 2/D
  2. COLACE [Concomitant]
  3. TEGRETOL [Concomitant]
  4. LITHIUM [Concomitant]
  5. TOPIMAX [Concomitant]
  6. LEVOTHYROXINE SODIUM [Concomitant]

REACTIONS (2)
  - DRUG TOXICITY [None]
  - OVERDOSE [None]
